FAERS Safety Report 19496669 (Version 1)
Quarter: 2021Q3

REPORT INFORMATION
  Report Type: Spontaneous
  Country: US (occurrence: US)
  Receive Date: 20210703
  Receipt Date: 20210703
  Transmission Date: 20211014
  Serious: No
  Sender: FDA-Public Use
  Company Number: None

PATIENT
  Age: 28 Year
  Sex: Female
  Weight: 76.5 kg

DRUGS (5)
  1. MONTELUKAST [Suspect]
     Active Substance: MONTELUKAST SODIUM
     Indication: MULTIPLE ALLERGIES
     Dates: start: 20190515, end: 20210628
  2. MONTELUKAST [Suspect]
     Active Substance: MONTELUKAST SODIUM
     Indication: ASTHMA
     Dates: start: 20190515, end: 20210628
  3. MIRENA [Concomitant]
     Active Substance: LEVONORGESTREL
  4. WELLBUTRIN [Concomitant]
     Active Substance: BUPROPION HYDROCHLORIDE
  5. OTC ALLERGY [Concomitant]

REACTIONS (6)
  - Tremor [None]
  - Anxiety [None]
  - Weight increased [None]
  - Depression [None]
  - Disturbance in attention [None]
  - Fatigue [None]
